FAERS Safety Report 8112139-8 (Version None)
Quarter: 2012Q1

REPORT INFORMATION
  Report Type: 
  Country: None (occurrence: None)
  Receive Date: 20120203
  Receipt Date: 20120131
  Transmission Date: 20120608
  Serious: Yes (Hospitalization)
  Sender: FDA-Public Use
  Company Number: US-AMGEN-USASP2012006562

PATIENT
  Age: 69 Year
  Sex: Female

DRUGS (5)
  1. ENBREL [Suspect]
     Indication: RHEUMATOID ARTHRITIS
     Dosage: 50 MG, QWK
  2. SYNTHROID [Concomitant]
     Dosage: UNK
  3. ASPIRIN [Concomitant]
     Dosage: 325 MG, UNK
  4. PROTONIX [Concomitant]
     Dosage: UNK
  5. FOSAMAX [Concomitant]
     Dosage: UNK

REACTIONS (9)
  - APHAGIA [None]
  - SKIN ULCER [None]
  - NERVOUS SYSTEM DISORDER [None]
  - DYSSTASIA [None]
  - VOMITING [None]
  - WEIGHT DECREASED [None]
  - DEHYDRATION [None]
  - DIZZINESS [None]
  - NAUSEA [None]
